FAERS Safety Report 5971196-5 (Version None)
Quarter: 2008Q4

REPORT INFORMATION
  Report Type: 
  Country: None (occurrence: None)
  Receive Date: 20081128
  Receipt Date: 20081117
  Transmission Date: 20090506
  Serious: Yes (Hospitalization)
  Sender: FDA-Public Use
  Company Number: AU-ROCHE-584273

PATIENT
  Age: 66 Year
  Sex: Female

DRUGS (13)
  1. KYTRIL [Suspect]
     Indication: ANTIEMETIC SUPPORTIVE CARE
     Route: 042
  2. KYTRIL [Suspect]
     Route: 042
  3. KYTRIL [Suspect]
     Dosage: DOSAGE REGIMEN REPORTED AS: STAT INDICATION: NAUSEA AND VOMITING.
     Route: 042
     Dates: start: 20080805, end: 20080805
  4. EMEND [Suspect]
     Indication: ANTIEMETIC SUPPORTIVE CARE
     Route: 048
  5. EMEND [Suspect]
     Route: 048
  6. EMEND [Suspect]
     Dosage: DOSAGE REGIMEN REPORTED AS STAT
     Route: 048
     Dates: start: 20080805, end: 20080805
  7. ATENOLOL [Concomitant]
  8. PERINDOPRIL [Concomitant]
  9. METFORMIN HCL [Concomitant]
  10. EZETIMIBE/SIMVASTATIN [Concomitant]
  11. ASPIRIN [Concomitant]
  12. PROCLORPERAZINA [Concomitant]
     Dosage: REPORTED AS PROCLORPERAZINE
  13. METOCLOPRAMIDE [Concomitant]

REACTIONS (3)
  - HOT FLUSH [None]
  - MUSCLE TWITCHING [None]
  - SWOLLEN TONGUE [None]
